FAERS Safety Report 7095275-7 (Version None)
Quarter: 2010Q4

REPORT INFORMATION
  Report Type: 
  Country: None (occurrence: None)
  Receive Date: 20101111
  Receipt Date: 20101102
  Transmission Date: 20110411
  Serious: No
  Sender: FDA-Public Use
  Company Number: US-B.I. PHARMACEUTICALS,INC./RIDGEFIELD-2010-BP-12280BP

PATIENT
  Age: 70 Year
  Sex: Female

DRUGS (1)
  1. COMBIVENT [Suspect]

REACTIONS (1)
  - DRUG INEFFECTIVE [None]
